FAERS Safety Report 19247831 (Version 1)
Quarter: 2021Q2

REPORT INFORMATION
  Report Type: Spontaneous
  Country: US (occurrence: US)
  Receive Date: 20210512
  Receipt Date: 20210512
  Transmission Date: 20210717
  Serious: Yes (Other)
  Sender: FDA-Public Use
  Company Number: US-BAYER-2021-133662

PATIENT
  Sex: Female

DRUGS (1)
  1. BAYER ASPIRIN EXTRA STRENGTH CAPLETS [Suspect]
     Active Substance: ASPIRIN
     Dosage: 3 DF, QD

REACTIONS (4)
  - Product package associated injury [Unknown]
  - Product container seal issue [None]
  - Thrombosis [Unknown]
  - Suspected counterfeit product [None]

NARRATIVE: CASE EVENT DATE: 20210329
